FAERS Safety Report 8727872 (Version 5)
Quarter: 2014Q2

REPORT INFORMATION
  Report Type: Spontaneous
  Country: CH (occurrence: CH)
  Receive Date: 20120816
  Receipt Date: 20140424
  Transmission Date: 20141212
  Serious: Yes (Other)
  Sender: FDA-Public Use
  Company Number: CH-JNJFOC-20120807713

PATIENT
  Age: 61 Year
  Sex: Female
  Weight: 55 kg

DRUGS (6)
  1. XARELTO [Suspect]
     Indication: LIGAMENT OPERATION
     Route: 048
     Dates: start: 20120427, end: 20120521
  2. XARELTO [Suspect]
     Indication: THROMBOSIS PROPHYLAXIS
     Route: 048
     Dates: start: 20120427, end: 20120521
  3. DAFALGAN [Suspect]
     Indication: PRODUCT USED FOR UNKNOWN INDICATION
     Route: 048
     Dates: start: 20120426, end: 20120521
  4. VOLTAREN [Concomitant]
     Route: 048
     Dates: start: 20120426, end: 20120504
  5. PANTOZOL [Concomitant]
     Route: 048
     Dates: start: 20120427, end: 20120504
  6. HYDROCHLOROTHIAZIDE [Concomitant]
     Route: 048
     Dates: start: 20091114

REACTIONS (5)
  - Liver injury [Recovered/Resolved]
  - Appetite disorder [Recovered/Resolved]
  - Nausea [Recovered/Resolved]
  - Pruritus [Recovered/Resolved]
  - Jaundice [Recovered/Resolved]
